FAERS Safety Report 21265728 (Version 1)
Quarter: 2022Q3

REPORT INFORMATION
  Report Type: Spontaneous
  Country: BE (occurrence: BE)
  Receive Date: 20220829
  Receipt Date: 20220829
  Transmission Date: 20221027
  Serious: Yes (Other)
  Sender: FDA-Public Use
  Company Number: BE-BoehringerIngelheim-2022-BI-189394

PATIENT
  Sex: Female

DRUGS (3)
  1. PRADAXA [Suspect]
     Active Substance: DABIGATRAN ETEXILATE MESYLATE
     Indication: Product used for unknown indication
  2. DULOXETINE [Suspect]
     Active Substance: DULOXETINE
     Indication: Product used for unknown indication
  3. WELLBUTRIN [Suspect]
     Active Substance: BUPROPION HYDROCHLORIDE
     Indication: Product used for unknown indication

REACTIONS (1)
  - Cerebrovascular accident [Unknown]
